FAERS Safety Report 15813390 (Version 2)
Quarter: 2019Q1

REPORT INFORMATION
  Report Type: Spontaneous
  Country: IL (occurrence: IL)
  Receive Date: 20190111
  Receipt Date: 20190125
  Transmission Date: 20190417
  Serious: Yes (Hospitalization)
  Sender: FDA-Public Use
  Company Number: IL-ASTRAZENECA-2019SE05630

PATIENT
  Age: 575 Day
  Sex: Female

DRUGS (1)
  1. SYNAGIS [Suspect]
     Active Substance: PALIVIZUMAB
     Indication: SPINAL MUSCULAR ATROPHY
     Route: 030
     Dates: start: 20181203, end: 20181203

REACTIONS (3)
  - Dyspnoea [Unknown]
  - Spinal muscular atrophy [Unknown]
  - Lung disorder [Unknown]

NARRATIVE: CASE EVENT DATE: 20190104
